FAERS Safety Report 7887063-6 (Version None)
Quarter: 2011Q4

REPORT INFORMATION
  Report Type: 
  Country: None (occurrence: None)
  Receive Date: 20111102
  Receipt Date: 20110714
  Transmission Date: 20120403
  Serious: No
  Sender: FDA-Public Use
  Company Number: US-AMGEN-USASP2011035859

PATIENT
  Age: 48 Year
  Sex: Female

DRUGS (8)
  1. CALCIUM [Concomitant]
     Dosage: 600 MG, UNK
  2. METHOTREXATE [Concomitant]
     Dosage: 2.5 MG, UNK
  3. ENBREL [Suspect]
     Indication: PRODUCT USED FOR UNKNOWN INDICATION
     Dosage: 50 MG, QWK
     Route: 058
  4. MOBICAM                            /00500401/ [Concomitant]
     Dosage: 7.5 MG, UNK
  5. FOSAMAX [Concomitant]
     Dosage: 10 MG, UNK
  6. MULTIVITAMIN                       /00097801/ [Concomitant]
     Dosage: UNK
  7. GLUCOSAMIN CHONDROITIN             /01430901/ [Suspect]
     Dosage: 500 MG, UNK
  8. FOLIC ACID [Concomitant]
     Dosage: 1 MG, UNK

REACTIONS (1)
  - INJECTION SITE REACTION [None]
